FAERS Safety Report 7548069-X (Version None)
Quarter: 2011Q2

REPORT INFORMATION
  Report Type: 
  Country: None (occurrence: None)
  Receive Date: 20110608
  Receipt Date: 20110525
  Transmission Date: 20111010
  Serious: Yes (Hospitalization)
  Sender: FDA-Public Use
  Company Number: DSJ-2011-10437

PATIENT
  Age: 81 Year
  Sex: Male

DRUGS (6)
  1. AMLODIPINE BESYLATE AND OLMESARTAN MEDOXOMIL [Suspect]
     Indication: HYPERTENSION
     Dosage: 40/5 MG(1 IN 1 D),PER ORAL
     Route: 048
     Dates: start: 20091201, end: 20110301
  2. AMLODIPINE BESYLATE AND OLMESARTAN MEDOXOMIL [Suspect]
     Indication: HYPERTENSION
     Dosage: 40/5 MG(1 IN 1 D),PER ORAL
     Route: 048
     Dates: start: 20110301
  3. SIMVASTATIN [Concomitant]
  4. PANTOPRAZOLE [Concomitant]
  5. CYPROTERONE [Concomitant]
  6. SITAGLIPTIN [Concomitant]

REACTIONS (1)
  - INFARCTION [None]
